FAERS Safety Report 6287591-3 (Version None)
Quarter: 2009Q3

REPORT INFORMATION
  Report Type: 
  Country: None (occurrence: None)
  Receive Date: 20090727
  Receipt Date: 20090716
  Transmission Date: 20100115
  Serious: Yes (Hospitalization)
  Sender: FDA-Public Use
  Company Number: 001299

PATIENT
  Sex: Female

DRUGS (3)
  1. ISOKET (ISOKET 40) [Suspect]
     Dosage: ORAL
     Route: 048
  2. LISINOPRIL (LISINOPRIL 10 MG) [Suspect]
     Dosage: ORAL
     Route: 048
  3. NIFEDIPIN (NIFEDIPIN) 10) (NOT SPECIFIED) [Suspect]
     Dosage: ORAL
     Route: 048

REACTIONS (1)
  - CONFUSIONAL STATE [None]
